FAERS Safety Report 8072932-7 (Version None)
Quarter: 2012Q1

REPORT INFORMATION
  Report Type: 
  Country: None (occurrence: None)
  Receive Date: 20120120
  Receipt Date: 20120106
  Transmission Date: 20120608
  Serious: Yes (Hospitalization, Other)
  Sender: FDA-Public Use
  Company Number: US-2011-10884

PATIENT
  Age: 52 Year
  Sex: Female

DRUGS (10)
  1. OPC-41061 (TOLVAPTAN) TABLET, 15MG MILLIGRAM(S) [Suspect]
     Indication: CONGENITAL CYSTIC KIDNEY DISEASE
     Dosage: 45/15MG SPLIT DOSE, ORAL
     Route: 048
     Dates: start: 20110427, end: 20111021
  2. ASCORBINSAEURE (ASCORBIC ACID) [Concomitant]
  3. ATACAND [Concomitant]
  4. TARGIN (NALOXONE HYDROCHLORIDE, OXYCODONE HYDROCHLORIDE) [Concomitant]
  5. OLMESARTAN MEDOXOMIL [Concomitant]
  6. BUSCOPAN PLUS (HYOSCINE BUTYLBROMIDE, PARACETAMOL) [Concomitant]
  7. IBUPROFEN [Concomitant]
  8. ACETAMINOPHEN [Concomitant]
  9. ASPIRIN [Concomitant]
  10. AMLODIPIN (AMLODIPINE BESILATE) [Concomitant]

REACTIONS (9)
  - HEPATIC CYST [None]
  - ALANINE AMINOTRANSFERASE INCREASED [None]
  - HEPATIC CYST INFECTION [None]
  - CHOLESTASIS [None]
  - BILE DUCT OBSTRUCTION [None]
  - HEPATIC CONGESTION [None]
  - CONDITION AGGRAVATED [None]
  - GAMMA-GLUTAMYLTRANSFERASE INCREASED [None]
  - BLOOD ALKALINE PHOSPHATASE INCREASED [None]
